FAERS Safety Report 5542890-5 (Version None)
Quarter: 2007Q4

REPORT INFORMATION
  Report Type: 
  Country: None (occurrence: None)
  Receive Date: 20071210
  Receipt Date: 20070928
  Transmission Date: 20080405
  Serious: No
  Sender: FDA-Public Use
  Company Number: US-AMGEN-KDL243580

PATIENT
  Sex: Female
  Weight: 54 kg

DRUGS (14)
  1. ENBREL [Suspect]
     Indication: RHEUMATOID ARTHRITIS
     Route: 058
     Dates: start: 20070830
  2. PLAQUENIL [Concomitant]
     Dates: start: 20050601
  3. METHOTREXATE [Concomitant]
     Dates: start: 20061201
  4. ENALAPRIL [Concomitant]
  5. LIPITOR [Concomitant]
  6. LEVOXYL [Concomitant]
  7. MOBIC [Concomitant]
  8. PREVACID [Concomitant]
  9. COMPAZINE [Concomitant]
  10. VICODIN [Concomitant]
  11. NOVOLOG [Concomitant]
  12. FOLIC ACID [Concomitant]
  13. CALCIUM [Concomitant]
  14. VITAMIN D [Concomitant]

REACTIONS (1)
  - OEDEMA PERIPHERAL [None]
